FAERS Safety Report 8823464 (Version 2)
Quarter: 2012Q4

REPORT INFORMATION
  Report Type: Report from Study
  Country: DE (occurrence: DE)
  Receive Date: 20121003
  Receipt Date: 20121227
  Transmission Date: 20130627
  Serious: Yes (Hospitalization)
  Sender: FDA-Public Use
  Company Number: DE-ABBOTT-12P-062-0987042-00

PATIENT
  Age: 41 None
  Sex: Female
  Weight: 77 kg

DRUGS (3)
  1. HUMIRA [Suspect]
     Indication: CROHN^S DISEASE
     Route: 058
     Dates: start: 20110505
  2. HUMIRA [Suspect]
     Route: 058
     Dates: start: 20121218
  3. IBUPROFEN [Concomitant]
     Indication: INTERVERTEBRAL DISC PROTRUSION
     Route: 048
     Dates: start: 201206, end: 20120702

REACTIONS (3)
  - Deafness [Recovered/Resolved]
  - Tinnitus [Recovered/Resolved]
  - Hidradenitis [Recovered/Resolved]
